FAERS Safety Report 25654936 (Version 1)
Quarter: 2025Q3

REPORT INFORMATION
  Report Type: Report from Study
  Country: CL (occurrence: CL)
  Receive Date: 20250807
  Receipt Date: 20250807
  Transmission Date: 20251020
  Serious: Yes (Disabling, Other)
  Sender: NOVARTIS
  Company Number: CL-002147023-NVSC2024CL104418

PATIENT
  Age: 50 Year
  Sex: Male

DRUGS (4)
  1. KESIMPTA [Suspect]
     Active Substance: OFATUMUMAB
     Indication: Relapsing-remitting multiple sclerosis
     Dosage: 20 MG, QMO
     Route: 058
     Dates: start: 20230915
  2. KESIMPTA [Suspect]
     Active Substance: OFATUMUMAB
     Route: 065
  3. KESIMPTA [Suspect]
     Active Substance: OFATUMUMAB
     Route: 065
  4. KESIMPTA [Suspect]
     Active Substance: OFATUMUMAB
     Route: 065

REACTIONS (8)
  - Multiple sclerosis relapse [Recovered/Resolved]
  - Dizziness [Unknown]
  - Headache [Recovering/Resolving]
  - Apathy [Recovered/Resolved]
  - Fatigue [Recovering/Resolving]
  - Discomfort [Recovering/Resolving]
  - Malaise [Unknown]
  - Product supply issue [Unknown]
